FAERS Safety Report 10529164 (Version 1)
Quarter: 2014Q3

REPORT INFORMATION
  Report Type: Spontaneous
  Country: DE (occurrence: None)
  Receive Date: 20140926
  Receipt Date: 20140926
  Transmission Date: 20150326
  Serious: Yes (Hospitalization)
  Sender: FDA-Public Use
  Company Number: GAM-316-14-DE

PATIENT
  Age: 21 Year
  Sex: Male

DRUGS (1)
  1. OCTAGAM IMMUNE GLOBULIN (HUMAN) [Suspect]
     Active Substance: HUMAN IMMUNOGLOBULIN G
     Indication: EVANS SYNDROME
     Dosage: (1X1/TOTAL)
     Route: 042
     Dates: start: 20140829, end: 20140829

REACTIONS (3)
  - Pyrexia [None]
  - Haemolysis [None]
  - Oropharyngeal pain [None]

NARRATIVE: CASE EVENT DATE: 20140905
